FAERS Safety Report 4837921-1 (Version None)
Quarter: 2005Q4

REPORT INFORMATION
  Report Type: 
  Country: None (occurrence: None)
  Receive Date: 20051123
  Receipt Date: 20051110
  Transmission Date: 20060501
  Serious: Yes (Life-Threatening, Hospitalization)
  Sender: FDA-Public Use
  Company Number: 2005146459

PATIENT
  Age: 7 Year
  Sex: Male

DRUGS (11)
  1. ZYVOX [Suspect]
     Indication: TUBERCULOSIS
     Dosage: ORAL
     Route: 048
     Dates: start: 20050901, end: 20051019
  2. COMBIVIR [Concomitant]
  3. KALETRA [Concomitant]
  4. NOPIL (SULFAMETHOXAZOLE, TRIMETHOPRIM) [Concomitant]
  5. VITAMIN B6 (VITAMIN B6) [Concomitant]
  6. ISOZID (ISONIAZID) [Concomitant]
  7. MYAMBUTOL [Concomitant]
  8. AVELOX [Concomitant]
  9. AMPHO-MORONAL (AMPHOTERICIN B) [Concomitant]
  10. OMEPRAZOLE [Concomitant]
  11. ZOFRAN [Concomitant]

REACTIONS (6)
  - ANAEMIA [None]
  - ANOREXIA [None]
  - FATIGUE [None]
  - LACTIC ACIDOSIS [None]
  - THROMBOCYTOPENIA [None]
  - VOMITING [None]
